FAERS Safety Report 21859229 (Version 1)
Quarter: 2023Q1

REPORT INFORMATION
  Report Type: Spontaneous
  Country: TW (occurrence: TW)
  Receive Date: 20230113
  Receipt Date: 20230113
  Transmission Date: 20230418
  Serious: Yes (Hospitalization, Other)
  Sender: FDA-Public Use
  Company Number: TW-Accord-295354

PATIENT
  Age: 45 Year
  Sex: Female

DRUGS (3)
  1. NALTREXONE HYDROCHLORIDE [Suspect]
     Active Substance: NALTREXONE HYDROCHLORIDE
     Indication: Alcohol use disorder
  2. LORAZEPAM [Concomitant]
     Active Substance: LORAZEPAM
     Indication: Alcohol withdrawal syndrome
     Dosage: 12 MG PER DAY
  3. SULPIRIDE [Concomitant]
     Active Substance: SULPIRIDE
     Indication: Alcohol withdrawal syndrome
     Dosage: 400 MG PER DAY

REACTIONS (3)
  - Hallucination, auditory [Recovered/Resolved]
  - Dysphoria [Recovered/Resolved]
  - Substance-induced psychotic disorder [Recovered/Resolved]
